FAERS Safety Report 4431223-3 (Version None)
Quarter: 2004Q3

REPORT INFORMATION
  Report Type: 
  Country: None (occurrence: None)
  Receive Date: 20040824
  Receipt Date: 20040802
  Transmission Date: 20050211
  Serious: Yes (Other)
  Sender: FDA-Public Use
  Company Number: 200412540JP

PATIENT
  Age: 32 Year
  Sex: Female

DRUGS (4)
  1. KETEK [Suspect]
     Indication: BACTERIAL INFECTION
     Route: 048
     Dates: start: 20040724, end: 20040725
  2. MUCOSTA [Suspect]
     Route: 048
     Dates: start: 20040724, end: 20040725
  3. BRUFEN [Suspect]
     Route: 048
     Dates: start: 20040724, end: 20040725
  4. CEFAZOLIN SODIUM [Suspect]

REACTIONS (3)
  - LYMPHADENOPATHY [None]
  - PYREXIA [None]
  - WHITE BLOOD CELL COUNT DECREASED [None]
